FAERS Safety Report 6780963-X (Version None)
Quarter: 2010Q2

REPORT INFORMATION
  Report Type: 
  Country: None (occurrence: None)
  Receive Date: 20100621
  Receipt Date: 20100614
  Transmission Date: 20101027
  Serious: Yes (Hospitalization, Other)
  Sender: FDA-Public Use
  Company Number: GB-B.I. PHARMACEUTICALS,INC./RIDGEFIELD-2010-DE-03243GD

PATIENT
  Sex: Male

DRUGS (2)
  1. NEVIRAPINE [Suspect]
     Indication: HIV INFECTION
     Dates: end: 20090401
  2. KIVEXA [Suspect]
     Indication: HIV INFECTION
     Dates: end: 20090401

REACTIONS (7)
  - DIARRHOEA [None]
  - DIARRHOEA HAEMORRHAGIC [None]
  - FATIGUE [None]
  - NAUSEA [None]
  - OROPHARYNGEAL PAIN [None]
  - RASH MACULAR [None]
  - VOMITING [None]
